FAERS Safety Report 15582309 (Version 1)
Quarter: 2018Q4

REPORT INFORMATION
  Report Type: Spontaneous
  Country: US (occurrence: US)
  Receive Date: 20181102
  Receipt Date: 20181102
  Transmission Date: 20190205
  Serious: No
  Sender: FDA-Public Use
  Company Number: US-RADIUS HEALTH INC.-2018US002449

PATIENT
  Sex: Female

DRUGS (1)
  1. TYMLOS [Suspect]
     Active Substance: ABALOPARATIDE
     Indication: OSTEOPOROSIS POSTMENOPAUSAL
     Dosage: 80 MCG, QD
     Route: 058
     Dates: start: 201809

REACTIONS (7)
  - Weight increased [Unknown]
  - Headache [Unknown]
  - Pain [Unknown]
  - Chest discomfort [Unknown]
  - Malaise [Unknown]
  - Flushing [Unknown]
  - Wrong technique in product usage process [Unknown]
